FAERS Safety Report 8484424-1 (Version None)
Quarter: 2012Q3

REPORT INFORMATION
  Report Type: 
  Country: None (occurrence: None)
  Receive Date: 20120703
  Receipt Date: 20120629
  Transmission Date: 20120928
  Serious: Yes (Other)
  Sender: FDA-Public Use
  Company Number: PHHY2012RU054962

PATIENT
  Sex: Female

DRUGS (2)
  1. ZOLEDRONOC ACID [Suspect]
     Indication: FEMORAL NECK FRACTURE
     Dosage: UNK UKN, UNK
     Route: 042
  2. SODIUM CHLORIDE [Concomitant]
     Dosage: 500 ML, UNK

REACTIONS (7)
  - BACK PAIN [None]
  - BODY TEMPERATURE INCREASED [None]
  - CHEST PAIN [None]
  - ABDOMINAL PAIN LOWER [None]
  - ABDOMINAL TENDERNESS [None]
  - DYSPNOEA [None]
  - ABDOMINAL PAIN UPPER [None]
